FAERS Safety Report 12905518 (Version 1)
Quarter: 2016Q4

REPORT INFORMATION
  Report Type: Spontaneous
  Country: US (occurrence: US)
  Receive Date: 20161103
  Receipt Date: 20161103
  Transmission Date: 20170207
  Serious: No
  Sender: FDA-Public Use
  Company Number: US-BIOGEN-2016BI00311374

PATIENT
  Sex: Female

DRUGS (3)
  1. TECFIDERA [Suspect]
     Active Substance: DIMETHYL FUMARATE
     Route: 065
     Dates: start: 20131002, end: 20131008
  2. TECFIDERA [Suspect]
     Active Substance: DIMETHYL FUMARATE
     Route: 065
     Dates: start: 20131008
  3. TECFIDERA [Suspect]
     Active Substance: DIMETHYL FUMARATE
     Indication: MULTIPLE SCLEROSIS
     Route: 065
     Dates: start: 20131001, end: 20131002

REACTIONS (1)
  - Mobility decreased [Not Recovered/Not Resolved]
